FAERS Safety Report 6169954-X (Version None)
Quarter: 2009Q2

REPORT INFORMATION
  Report Type: 
  Country: None (occurrence: None)
  Receive Date: 20090428
  Receipt Date: 20090424
  Transmission Date: 20091009
  Serious: Yes (Death)
  Sender: FDA-Public Use
  Company Number: JP-JNJFOC-20090301540

PATIENT
  Age: 49 Year
  Sex: Male
  Weight: 50 kg

DRUGS (5)
  1. RISPERDAL [Suspect]
     Route: 048
  2. RISPERDAL [Suspect]
     Indication: SCHIZOPHRENIA
     Dosage: BED TIME
     Route: 048
  3. ESTAZOLAM [Concomitant]
     Indication: SCHIZOPHRENIA
     Route: 048
  4. TOCOPHEROL ACETATE [Concomitant]
     Indication: VITAMIN E DEFICIENCY
     Route: 048
  5. LANSOPRAZOLE [Concomitant]
     Indication: GASTRIC ULCER
     Route: 048

REACTIONS (3)
  - HEAT ILLNESS [None]
  - SUDDEN DEATH [None]
  - TREMOR [None]
